FAERS Safety Report 15302867 (Version 1)
Quarter: 2018Q4

REPORT INFORMATION
  Report Type: Spontaneous
  Country: GB (occurrence: GB)
  Receive Date: 20180821
  Receipt Date: 20180821
  Transmission Date: 20190204
  Serious: Yes (Other)
  Sender: FDA-Public Use
  Company Number: GB-TERSERA THERAPEUTICS LLC-TSR2017000507

PATIENT

DRUGS (1)
  1. ZOLADEX [Suspect]
     Active Substance: GOSERELIN ACETATE
     Indication: PRODUCT USED FOR UNKNOWN INDICATION
     Dosage: 10.8 MILLIGRAM UNK
     Route: 058
     Dates: start: 20170919

REACTIONS (3)
  - Device dislocation [Unknown]
  - Administration site discomfort [Unknown]
  - Product quality issue [Unknown]

NARRATIVE: CASE EVENT DATE: 20170919
